FAERS Safety Report 19304575 (Version 2)
Quarter: 2021Q2

REPORT INFORMATION
  Report Type: Report from Study
  Country: FR (occurrence: FR)
  Receive Date: 20210525
  Receipt Date: 20210614
  Transmission Date: 20210717
  Serious: Yes (Death, Other)
  Sender: FDA-Public Use
  Company Number: FR-EVEREST MEDICINES II (HK) LIMITED-2021-0532200

PATIENT
  Age: 69 Year
  Sex: Female

DRUGS (3)
  1. OROCAL [CALCIUM CARBONATE] [Concomitant]
     Active Substance: CALCIUM CARBONATE
  2. SACITUZUMAB GOVITECAN. [Suspect]
     Active Substance: SACITUZUMAB GOVITECAN
     Indication: TRIPLE NEGATIVE BREAST CANCER
     Dosage: 820 MG
     Route: 042
     Dates: start: 20210430, end: 20210507
  3. ALLOPURINOL. [Concomitant]
     Active Substance: ALLOPURINOL

REACTIONS (3)
  - Neutropenia [Unknown]
  - Toxic shock syndrome [Fatal]
  - Thrombocytopenia [Unknown]

NARRATIVE: CASE EVENT DATE: 20210513
